FAERS Safety Report 8880400 (Version 2)
Quarter: 2012Q4

REPORT INFORMATION
  Report Type: 
  Country: JP (occurrence: JP)
  Receive Date: 20121031
  Receipt Date: 20121127
  Transmission Date: 20130627
  Serious: Yes (Death, Other)
  Sender: FDA-Public Use
  Company Number: PHHY2012JP097635

PATIENT
  Age: 50 Year
  Sex: Female

DRUGS (6)
  1. OXALIPLATIN [Suspect]
     Indication: ADENOCARCINOMA
     Dosage: 85 mg/m2, UNK
     Route: 040
  2. FLUOROURACIL [Suspect]
     Indication: ADENOCARCINOMA
     Dosage: 400 mg/m2, UNK
  3. FLUOROURACIL [Suspect]
     Dosage: 2400 mg/m2, over 46 hours
  4. CALCIUM LEVOFOLINATE [Suspect]
     Indication: ADENOCARCINOMA
     Dosage: 200 mg/m2, UNK
  5. BEVACIZUMAB [Suspect]
  6. CETUXIMAB [Suspect]
     Indication: ADENOCARCINOMA

REACTIONS (4)
  - Malignant pleural effusion [Fatal]
  - Metastases to lung [Unknown]
  - Hypersensitivity [Unknown]
  - Hypotension [Unknown]
